FAERS Safety Report 11553825 (Version 2)
Quarter: 2015Q3

REPORT INFORMATION
  Report Type: Spontaneous
  Country: US (occurrence: US)
  Receive Date: 20150925
  Receipt Date: 20150929
  Transmission Date: 20151125
  Serious: Yes (Other)
  Sender: FDA-Public Use
  Company Number: US-PFIZER INC-2015318874

PATIENT
  Age: 54 Year
  Sex: Female
  Weight: 105 kg

DRUGS (2)
  1. LYRICA [Suspect]
     Active Substance: PREGABALIN
     Indication: DIABETIC NEUROPATHY
     Dosage: 75 MG, 1X/DAY
     Route: 048
     Dates: start: 2014
  2. LYRICA [Suspect]
     Active Substance: PREGABALIN
     Dosage: UNK
     Route: 048
     Dates: start: 201505, end: 201505

REACTIONS (19)
  - Eye disorder [Not Recovered/Not Resolved]
  - Heart rate increased [Unknown]
  - Myocardial infarction [Recovered/Resolved]
  - Anxiety [Unknown]
  - Pain in extremity [Recovered/Resolved]
  - Weight increased [Not Recovered/Not Resolved]
  - Blister rupture [Recovered/Resolved]
  - Impaired driving ability [Unknown]
  - Dyspnoea [Recovered/Resolved]
  - Insomnia [Unknown]
  - Visual acuity reduced [Not Recovered/Not Resolved]
  - Chest pain [Recovered/Resolved]
  - Corneal disorder [Not Recovered/Not Resolved]
  - Dry eye [Unknown]
  - Peripheral swelling [Recovered/Resolved]
  - Pigmentation disorder [Unknown]
  - Somnolence [Not Recovered/Not Resolved]
  - Drug withdrawal syndrome [Not Recovered/Not Resolved]
  - Paraesthesia [Recovered/Resolved]

NARRATIVE: CASE EVENT DATE: 2014
